FAERS Safety Report 6705407-5 (Version None)
Quarter: 2010Q2

REPORT INFORMATION
  Report Type: 
  Country: None (occurrence: None)
  Receive Date: 20100503
  Receipt Date: 20100421
  Transmission Date: 20101027
  Serious: Yes (Hospitalization)
  Sender: FDA-Public Use
  Company Number: US-BIOGENIDEC-2010BI013233

PATIENT
  Age: 56 Year
  Sex: Female
  Weight: 93 kg

DRUGS (2)
  1. AVONEX [Suspect]
     Indication: MULTIPLE SCLEROSIS
     Route: 030
     Dates: start: 20051201, end: 20090701
  2. AVONEX [Suspect]
     Route: 030
     Dates: start: 20091001, end: 20100331

REACTIONS (6)
  - COLON CANCER [None]
  - FALL [None]
  - FIBROMYALGIA [None]
  - HYPOAESTHESIA [None]
  - OSTEOSCLEROSIS [None]
  - SPINAL COLUMN STENOSIS [None]
